FAERS Safety Report 6093339-8 (Version None)
Quarter: 2009Q1

REPORT INFORMATION
  Report Type: 
  Country: None (occurrence: None)
  Receive Date: 20090225
  Receipt Date: 20090225
  Transmission Date: 20090719
  Serious: No
  Sender: FDA-Public Use
  Company Number: None

PATIENT
  Sex: Female
  Weight: 67.1324 kg

DRUGS (2)
  1. ESTRACE [Suspect]
     Indication: HYSTERECTOMY
     Dates: start: 20060101, end: 20060601
  2. ESTRACE [Suspect]
     Indication: SALPINGO-OOPHORECTOMY UNILATERAL
     Dates: start: 20060101, end: 20060601

REACTIONS (2)
  - INSOMNIA [None]
  - PRODUCT QUALITY ISSUE [None]
